FAERS Safety Report 21000663 (Version 1)
Quarter: 2022Q2

REPORT INFORMATION
  Report Type: Report from Study
  Country: CN (occurrence: CN)
  Receive Date: 20220623
  Receipt Date: 20220623
  Transmission Date: 20220721
  Serious: Yes (Hospitalization, Other)
  Sender: FDA-Public Use
  Company Number: CN-TAKEDA-2022TUS031142

PATIENT
  Age: 38 Year
  Sex: Female
  Weight: 68 kg

DRUGS (14)
  1. BRENTUXIMAB VEDOTIN [Suspect]
     Active Substance: BRENTUXIMAB VEDOTIN
     Indication: Hodgkin^s disease
     Dosage: 50 MILLIGRAM, Q2WEEKS
     Route: 042
     Dates: start: 20211122
  2. GLUTATHIONE [Concomitant]
     Active Substance: GLUTATHIONE
     Indication: Product used for unknown indication
     Dosage: UNK
     Route: 065
  3. MAGNESIUM ISOGLYCYRRHIZINATE [Concomitant]
     Active Substance: MAGNESIUM ISOGLYCYRRHIZINATE
     Indication: Product used for unknown indication
     Dosage: UNK
     Route: 065
  4. SULFAMETHOXAZOLE [Concomitant]
     Active Substance: SULFAMETHOXAZOLE
     Indication: Product used for unknown indication
     Dosage: UNK UNK, QD
     Route: 048
     Dates: start: 2021
  5. ACYCLOVIR [Concomitant]
     Active Substance: ACYCLOVIR
     Dosage: UNK UNK, BID
     Route: 048
     Dates: start: 2021
  6. TIANQING GAN PING [Concomitant]
     Indication: Product used for unknown indication
     Dosage: UNK UNK, TID
     Route: 048
  7. LEUCOGEN [Concomitant]
     Active Substance: LEUCOGEN
     Indication: Chemotherapy side effect prophylaxis
     Dosage: UNK UNK, QD
     Route: 048
     Dates: start: 2021
  8. EPIRUBICIN HYDROCHLORIDE [Concomitant]
     Active Substance: EPIRUBICIN HYDROCHLORIDE
     Indication: Lymphoma
     Dosage: 40 MILLIGRAM, QD
     Route: 048
     Dates: start: 20220211, end: 20220211
  9. VINDESINE [Concomitant]
     Active Substance: VINDESINE
     Indication: Lymphoma
     Dosage: 4 MILLIGRAM, QD
     Route: 048
     Dates: start: 20220211, end: 20220211
  10. DACARBAZINE [Concomitant]
     Active Substance: DACARBAZINE
     Indication: Lymphoma
     Dosage: 500 MILLIGRAM, QD
     Route: 048
     Dates: start: 20220211, end: 20220211
  11. HERBALS\DIAMMONIUM GLYCYRRHIZINATE [Concomitant]
     Active Substance: HERBALS\DIAMMONIUM GLYCYRRHIZINATE
     Dosage: UNK UNK, TID
     Route: 048
     Dates: start: 2021
  12. CEFACLOR [Concomitant]
     Active Substance: CEFACLOR
     Dosage: UNK UNK, QD
     Route: 048
     Dates: start: 2021
  13. CLOSTRIDIUM BUTYRICUM SPORES STRAIN M-55 [Concomitant]
     Active Substance: CLOSTRIDIUM BUTYRICUM SPORES STRAIN M-55
     Indication: Constipation
     Dosage: UNK UNK, QD
     Route: 048
     Dates: start: 2021
  14. VALACYCLOVIR HYDROCHLORIDE [Concomitant]
     Active Substance: VALACYCLOVIR HYDROCHLORIDE
     Indication: Antiviral treatment
     Dosage: UNK UNK, BID
     Route: 048
     Dates: start: 2021

REACTIONS (3)
  - Neurotoxicity [Not Recovered/Not Resolved]
  - Hepatitis E [Recovered/Resolved]
  - Off label use [Unknown]

NARRATIVE: CASE EVENT DATE: 20211122
